FAERS Safety Report 7576604-4 (Version None)
Quarter: 2011Q2

REPORT INFORMATION
  Report Type: 
  Country: None (occurrence: None)
  Receive Date: 20110624
  Receipt Date: 20110624
  Transmission Date: 20111010
  Serious: Yes (Other)
  Sender: FDA-Public Use
  Company Number: None

PATIENT
  Age: 70 Year
  Weight: 57 kg

DRUGS (1)
  1. AVEENO POSITIVELY RADIANT CLEANSER [Suspect]
     Indication: PROPHYLAXIS
     Dosage: TOPICAL
     Route: 061
     Dates: start: 20110518, end: 20110518

REACTIONS (4)
  - NO THERAPEUTIC RESPONSE [None]
  - SWELLING FACE [None]
  - ERYTHEMA [None]
  - RASH [None]
